FAERS Safety Report 8097658-5 (Version None)
Quarter: 2012Q1

REPORT INFORMATION
  Report Type: 
  Country: None (occurrence: None)
  Receive Date: 20120128
  Receipt Date: 20110706
  Transmission Date: 20120608
  Serious: No
  Sender: FDA-Public Use
  Company Number: US-ABBOTT-11P-163-0836525-00

PATIENT
  Age: 66 Year
  Sex: Female

DRUGS (9)
  1. ARTHROTEC [Concomitant]
     Indication: PSORIATIC ARTHROPATHY
     Dosage: TWICE A DAY
  2. FOLIC ACID [Concomitant]
     Indication: DRUG THERAPY
  3. FERROUS SULFATE TAB [Concomitant]
     Indication: ANAEMIA
  4. MULTIVITAMIN [Concomitant]
     Indication: MACULAR DEGENERATION
  5. HUMIRA [Suspect]
     Indication: PSORIATIC ARTHROPATHY
     Dates: start: 20080101
  6. METHOTREXATE [Concomitant]
     Indication: PSORIATIC ARTHROPATHY
  7. FUROSEMIDE [Concomitant]
     Indication: OEDEMA
     Dosage: DAILY
  8. HUMIRA [Suspect]
     Dates: start: 20110401, end: 20110501
  9. HYDROCODONE BITARTRATE [Concomitant]
     Indication: PAIN
     Dosage: 10/325MG, EVERY 4-6 HOURS

REACTIONS (3)
  - RASH [None]
  - MELANOCYTIC NAEVUS [None]
  - MYALGIA [None]
